FAERS Safety Report 8490617 (Version 2)
Quarter: 2012Q4

REPORT INFORMATION
  Report Type: 
  Country: US (occurrence: US)
  Receive Date: 20120403
  Receipt Date: 20120910
  Transmission Date: 20130627
  Serious: Yes (Hospitalization)
  Sender: FDA-Public Use
  Company Number: US-BAYER-2012-029784

PATIENT
  Age: 24 Year
  Sex: Female
  Weight: 113.38 kg

DRUGS (5)
  1. YAZ [Suspect]
     Indication: MENSTRUATION IRREGULAR
     Dosage: UNK
     Dates: start: 2001
  2. YASMIN [Suspect]
     Indication: MENSTRUATION IRREGULAR
     Dosage: UNK
     Dates: start: 200702, end: 201008
  3. VITAMIN C [Concomitant]
     Dosage: UNK
  4. LORATADINE [Concomitant]
     Dosage: 10 mg, UNK
  5. OLUX [Concomitant]
     Dosage: 0.05 %, FOA [INTERPRETED AS FOAM]

REACTIONS (10)
  - Pancreatitis [None]
  - Cholelithiasis [None]
  - Chest pain [None]
  - Pain [None]
  - Anxiety [None]
  - Psychological trauma [None]
  - Abdominal pain [None]
  - Nausea [None]
  - Injury [None]
  - Emotional distress [None]
